FAERS Safety Report 4778015-3 (Version None)
Quarter: 2005Q3

REPORT INFORMATION
  Report Type: 
  Country: None (occurrence: None)
  Receive Date: 20050921
  Receipt Date: 20050907
  Transmission Date: 20060218
  Serious: Yes (Life-Threatening)
  Sender: FDA-Public Use
  Company Number: 2005JP001619

PATIENT
  Age: 66 Year
  Sex: Male
  Weight: 45 kg

DRUGS (14)
  1. FUNGUARD (MICAFUNGIN INJECTION) INJECTION [Suspect]
     Indication: BRONCHOPULMONARY ASPERGILLOSIS
     Dosage: SEE IMAGE, IV DRIP
     Route: 041
     Dates: start: 20050310, end: 20050316
  2. FUNGUARD (MICAFUNGIN INJECTION) INJECTION [Suspect]
     Indication: BRONCHOPULMONARY ASPERGILLOSIS
     Dosage: SEE IMAGE, IV DRIP
     Route: 041
     Dates: start: 20050317, end: 20050413
  3. FUNGUARD (MICAFUNGIN INJECTION) INJECTION [Suspect]
     Indication: BRONCHOPULMONARY ASPERGILLOSIS
     Dosage: SEE IMAGE, IV DRIP
     Route: 041
     Dates: start: 20050428, end: 20050608
  4. RIFAMPICIN (RIFAMPICIN) PER ORAL NOS [Suspect]
     Dosage: 450.00, D, ORAL
     Route: 048
     Dates: end: 20050425
  5. MAGNESIUM OXIDE (MAGNESIUM OXIDE) [Concomitant]
  6. FAMOTIDINE [Concomitant]
  7. CLARITIH (CLARITHROMYCIN) [Concomitant]
  8. EBUTOL (ETHAMBUTOL) [Concomitant]
  9. SELBEX (TEPRENONE) [Concomitant]
  10. GLYCYRON (AMINOACETIC ACID, DL-METHIONINE, GLYCYRRHIZIC ACID) TABLET [Concomitant]
  11. PROHEPARUM (CYSTEINE, INOSITOL, LIVER HYDROLYSATE, CHOLINE BITARTRATE) [Concomitant]
  12. FUNGIZONE INJECTION [Concomitant]
  13. ITRACONAZOLE [Concomitant]
  14. SOLU-MEDROL [Concomitant]

REACTIONS (2)
  - EOSINOPHILIC PNEUMONIA [None]
  - HEPATIC FUNCTION ABNORMAL [None]
